FAERS Safety Report 9375598 (Version 2)
Quarter: 2013Q2

REPORT INFORMATION
  Report Type: Spontaneous
  Country: DE (occurrence: DE)
  Receive Date: 20130628
  Receipt Date: 20130628
  Transmission Date: 20140414
  Serious: Yes (Disabling)
  Sender: FDA-Public Use
  Company Number: DE-TEVA-404372GER

PATIENT
  Age: 59 Year
  Sex: Female
  Weight: 55 kg

DRUGS (2)
  1. ESTREVA 0,1% GEL [Suspect]
     Indication: HORMONE REPLACEMENT THERAPY
     Dates: start: 2001
  2. BLACK COHOSH [Interacting]
     Dates: start: 20130328, end: 20130409

REACTIONS (4)
  - Blood oestrogen decreased [Recovered/Resolved]
  - General physical health deterioration [Recovered/Resolved]
  - Depressed mood [Recovered/Resolved]
  - Drug interaction [Recovered/Resolved]
